FAERS Safety Report 14504377 (Version 1)
Quarter: 2018Q1

REPORT INFORMATION
  Report Type: Spontaneous
  Country: US (occurrence: US)
  Receive Date: 20180208
  Receipt Date: 20180208
  Transmission Date: 20180509
  Serious: No
  Sender: FDA-Public Use
  Company Number: US-JNJFOC-20171218119

PATIENT
  Age: 74 Year
  Sex: Female
  Weight: 113.4 kg

DRUGS (2)
  1. TYLENOL REGULAR STRENGTH [Suspect]
     Active Substance: ACETAMINOPHEN
     Indication: GOUT
     Route: 065
     Dates: start: 20171209, end: 20171209
  2. TYLENOL REGULAR STRENGTH [Suspect]
     Active Substance: ACETAMINOPHEN
     Indication: ANGINA PECTORIS
     Route: 065
     Dates: start: 20171209, end: 20171209

REACTIONS (3)
  - Drug hypersensitivity [Recovering/Resolving]
  - Product use in unapproved indication [Unknown]
  - Urticaria [Recovering/Resolving]

NARRATIVE: CASE EVENT DATE: 20171209
